FAERS Safety Report 9487185 (Version 1)
Quarter: 2013Q3

REPORT INFORMATION
  Report Type: Spontaneous
  Country: US (occurrence: US)
  Receive Date: 20130829
  Receipt Date: 20130829
  Transmission Date: 20140515
  Serious: Yes (Other)
  Sender: FDA-Public Use
  Company Number: US-AMGEN-USASP2013060668

PATIENT
  Age: 61 Year
  Sex: Male

DRUGS (1)
  1. ENBREL [Suspect]
     Indication: PSORIASIS
     Dosage: UNK
     Route: 065
     Dates: start: 20040620

REACTIONS (3)
  - Surgery [Not Recovered/Not Resolved]
  - Mood altered [Not Recovered/Not Resolved]
  - Pain [Not Recovered/Not Resolved]
